FAERS Safety Report 6186497-8 (Version None)
Quarter: 2009Q2

REPORT INFORMATION
  Report Type: 
  Country: None (occurrence: None)
  Receive Date: 20090512
  Receipt Date: 20090507
  Transmission Date: 20091009
  Serious: No
  Sender: FDA-Public Use
  Company Number: JP-JNJFOC-20090406333

PATIENT
  Age: 59 Year
  Sex: Female

DRUGS (6)
  1. DUROTEP MT [Suspect]
     Indication: DRUG USE FOR UNKNOWN INDICATION
     Route: 062
  2. PLAVIX [Concomitant]
     Route: 048
  3. AROMASIN [Concomitant]
     Route: 048
  4. LOXONIN [Concomitant]
     Route: 065
  5. DIOVAN [Concomitant]
     Route: 048
  6. PURSENNID [Concomitant]
     Route: 048

REACTIONS (2)
  - INCORRECT DOSE ADMINISTERED [None]
  - NAUSEA [None]
